FAERS Safety Report 22162858 (Version 7)
Quarter: 2024Q3

REPORT INFORMATION
  Report Type: Report from Study
  Country: CN (occurrence: CN)
  Receive Date: 20230331
  Receipt Date: 20240829
  Transmission Date: 20241016
  Serious: Yes (Hospitalization, Other)
  Sender: TAKEDA
  Company Number: CN-TAKEDA-2023TUS033153

PATIENT
  Age: 44 Year
  Sex: Male
  Weight: 56 kg

DRUGS (9)
  1. VEDOLIZUMAB [Suspect]
     Active Substance: VEDOLIZUMAB
     Indication: Crohn^s disease
     Dosage: 300 MILLIGRAM
     Route: 042
     Dates: start: 20230110
  2. LACTULOSE [Concomitant]
     Active Substance: LACTULOSE
     Indication: Functional gastrointestinal disorder
     Dosage: 15 MILLILITER
     Route: 048
     Dates: start: 20230124
  3. BUDESONIDE\FORMOTEROL FUMARATE [Concomitant]
     Active Substance: BUDESONIDE\FORMOTEROL FUMARATE
     Dosage: UNK UNK, QD
     Route: 055
  4. POTASSIUM CHLORIDE [Concomitant]
     Active Substance: POTASSIUM CHLORIDE
     Indication: Electrolyte imbalance
     Dosage: 1 GRAM, QD
     Route: 042
     Dates: start: 20230319, end: 20230322
  5. SODIUM POTASSIUM MAGNESIUM CALCIUM AND GLUCOSE [Concomitant]
     Indication: Electrolyte imbalance
     Dosage: 500 MILLILITER, QD
     Route: 042
     Dates: start: 20230319, end: 20230323
  6. ROXATIDINE ACETATE HYDROCHLORIDE [Concomitant]
     Active Substance: ROXATIDINE ACETATE HYDROCHLORIDE
     Indication: Prophylaxis
     Dosage: 75 MILLIGRAM, QD
     Route: 042
     Dates: start: 20230319
  7. ROXATIDINE ACETATE HYDROCHLORIDE [Concomitant]
     Active Substance: ROXATIDINE ACETATE HYDROCHLORIDE
     Indication: Inflammatory bowel disease
     Dosage: 0.5 GRAM, TID
     Route: 048
     Dates: start: 20230322
  8. RABEPRAZOLE SODIUM [Concomitant]
     Active Substance: RABEPRAZOLE SODIUM
     Indication: Prophylaxis
     Dosage: 20 GRAM, QD
     Route: 048
     Dates: start: 20230517, end: 202307
  9. Live combined bifidobacterium, lactobacillus and enterococcus [Concomitant]
     Indication: Inflammatory bowel disease
     Dosage: 0.42 GRAM, BID
     Route: 048
     Dates: start: 20240512

REACTIONS (1)
  - Intestinal obstruction [Recovering/Resolving]

NARRATIVE: CASE EVENT DATE: 20230319
